FAERS Safety Report 6032206-2 (Version None)
Quarter: 2009Q1

REPORT INFORMATION
  Report Type: 
  Country: None (occurrence: None)
  Receive Date: 20090108
  Receipt Date: 20081229
  Transmission Date: 20090719
  Serious: Yes (Hospitalization, Other)
  Sender: FDA-Public Use
  Company Number: ES-PFIZER INC-2008160258

PATIENT

DRUGS (2)
  1. NEURONTIN [Suspect]
     Indication: BACK PAIN
     Dosage: 600 MG, 3X/DAY
     Route: 048
     Dates: start: 20020101
  2. LYRICA [Suspect]
     Dosage: UNK
     Route: 048
     Dates: start: 20040101, end: 20040101

REACTIONS (10)
  - ABDOMINAL PAIN UPPER [None]
  - COLITIS [None]
  - DEHYDRATION [None]
  - DIARRHOEA [None]
  - HYPERCHOLESTEROLAEMIA [None]
  - HYPERTENSION [None]
  - LIP SWELLING [None]
  - RASH [None]
  - TINNITUS [None]
  - VOMITING [None]
